FAERS Safety Report 9299345 (Version 2)
Quarter: 2013Q4

REPORT INFORMATION
  Report Type: Spontaneous
  Country: US (occurrence: US)
  Receive Date: 20130520
  Receipt Date: 20131107
  Transmission Date: 20140711
  Serious: Yes (Death, Hospitalization, Other)
  Sender: FDA-Public Use
  Company Number: US-B.I. PHARMACEUTICALS,INC./RIDGEFIELD-2013-BI-13952BP

PATIENT
  Age: 81 Year
  Sex: Male
  Weight: 51.26 kg

DRUGS (9)
  1. PRADAXA [Suspect]
     Indication: ANTICOAGULANT THERAPY
     Route: 048
     Dates: start: 20110328, end: 201208
  2. AVODART [Concomitant]
     Dosage: 0.5 MG
     Route: 048
  3. PAROXETINE [Concomitant]
     Dosage: 10 MG
  4. ALLOPURINOL [Concomitant]
     Indication: BLOOD URIC ACID INCREASED
     Dosage: 300 MG
  5. BUMETANIDE [Concomitant]
     Dosage: 4 MG
  6. CARVEDILOL [Concomitant]
     Dosage: 50 MG
  7. TAMSULOSIN [Concomitant]
     Dosage: 0.4 MG
     Route: 048
  8. LISINOPRIL [Concomitant]
     Dosage: 40 MG
  9. POTASSIUM [Concomitant]

REACTIONS (3)
  - Staphylococcal bacteraemia [Fatal]
  - Rectal haemorrhage [Recovered/Resolved]
  - Coagulopathy [Unknown]
